FAERS Safety Report 9231292 (Version 2)
Quarter: 2013Q2

REPORT INFORMATION
  Report Type: Spontaneous
  Country: DE (occurrence: DE)
  Receive Date: 20130415
  Receipt Date: 20130531
  Transmission Date: 20140414
  Serious: Yes (Life-Threatening, Hospitalization)
  Sender: FDA-Public Use
  Company Number: DE-BAYER-2013-046130

PATIENT
  Age: 71 Year
  Sex: Female

DRUGS (1)
  1. ULTRAVIST [Suspect]
     Dosage: 135 ML, ONCE
     Route: 042

REACTIONS (4)
  - Dyspnoea [Unknown]
  - Gastrointestinal pain [Unknown]
  - Nausea [Unknown]
  - Vomiting [Unknown]
